FAERS Safety Report 4876190-3 (Version None)
Quarter: 2006Q1

REPORT INFORMATION
  Report Type: 
  Country: None (occurrence: None)
  Receive Date: 20060110
  Receipt Date: 20051122
  Transmission Date: 20060701
  Serious: Yes (Other)
  Sender: FDA-Public Use
  Company Number: GB-JNJFOC-20060101251

PATIENT
  Sex: Male

DRUGS (6)
  1. RISPERDAL CONSTA [Suspect]
     Dosage: ^2 LOTS OF 25 MG AND 1 LOT 37.5 MG^
  2. RISPERDAL [Suspect]
     Route: 048
  3. DEPIXOL [Suspect]
  4. QUETIAPINE FUMARATE [Suspect]
  5. DIURETICS [Concomitant]
  6. BETA BLOCKERS [Concomitant]

REACTIONS (1)
  - ELECTROCARDIOGRAM QT PROLONGED [None]
